FAERS Safety Report 9737018 (Version 2)
Quarter: 2015Q3

REPORT INFORMATION
  Report Type: Spontaneous
  Country: US (occurrence: US)
  Receive Date: 20131206
  Receipt Date: 20150804
  Transmission Date: 20151125
  Serious: No
  Sender: FDA-Public Use
  Company Number: US-GILEAD-2009-0023761

PATIENT
  Age: 32 Year
  Sex: Female
  Weight: 45.36 kg

DRUGS (11)
  1. LETAIRIS [Suspect]
     Active Substance: AMBRISENTAN
     Route: 048
     Dates: start: 20080116
  2. PREVACID [Concomitant]
     Active Substance: LANSOPRAZOLE
  3. LETAIRIS [Suspect]
     Active Substance: AMBRISENTAN
     Indication: PULMONARY ARTERIAL HYPERTENSION
     Route: 048
  4. DIGOXIN. [Concomitant]
     Active Substance: DIGOXIN
  5. LASIX [Concomitant]
     Active Substance: FUROSEMIDE
  6. REVATIO [Concomitant]
     Active Substance: SILDENAFIL CITRATE
     Dates: start: 20080125
  7. CARDIZEM [Concomitant]
     Active Substance: DILTIAZEM HYDROCHLORIDE
  8. SPIRONOLACTONE. [Concomitant]
     Active Substance: SPIRONOLACTONE
  9. VENTAVIS [Concomitant]
     Active Substance: ILOPROST
     Dates: start: 20080121
  10. COUMADIN [Concomitant]
     Active Substance: WARFARIN SODIUM
  11. AMIODARONE HCL [Concomitant]
     Active Substance: AMIODARONE HYDROCHLORIDE

REACTIONS (1)
  - Nasal congestion [Unknown]
